FAERS Safety Report 7650770-4 (Version None)
Quarter: 2011Q3

REPORT INFORMATION
  Report Type: 
  Country: None (occurrence: None)
  Receive Date: 20110802
  Receipt Date: 20110727
  Transmission Date: 20111222
  Serious: Yes (Hospitalization, Disabling, Other)
  Sender: FDA-Public Use
  Company Number: BR-PFIZER INC-2011172225

PATIENT
  Age: 59 Year
  Sex: Male

DRUGS (1)
  1. VIAGRA [Suspect]

REACTIONS (2)
  - SYNCOPE [None]
  - HYPERSOMNIA [None]
